FAERS Safety Report 6574119-3 (Version None)
Quarter: 2010Q1

REPORT INFORMATION
  Report Type: 
  Country: None (occurrence: None)
  Receive Date: 20100208
  Receipt Date: 20100130
  Transmission Date: 20100710
  Serious: Yes (Other)
  Sender: FDA-Public Use
  Company Number: FR-BAYER-201014302GPV

PATIENT
  Age: 47 Year

DRUGS (4)
  1. IZILOX [Suspect]
     Indication: BRONCHITIS
     Dates: start: 20100127
  2. CEFTRIAXONE [Concomitant]
  3. CELESTENE [Concomitant]
     Dates: start: 20100123, end: 20100125
  4. BUDESONIDE [Concomitant]

REACTIONS (4)
  - DEPRESSED LEVEL OF CONSCIOUSNESS [None]
  - ERYTHEMA [None]
  - FLUSHING [None]
  - HYPERTENSION [None]
